FAERS Safety Report 7401340-4 (Version None)
Quarter: 2011Q2

REPORT INFORMATION
  Report Type: 
  Country: None (occurrence: None)
  Receive Date: 20110407
  Receipt Date: 20110324
  Transmission Date: 20111010
  Serious: Yes (Other)
  Sender: FDA-Public Use
  Company Number: DE-GENENTECH-315951

PATIENT
  Age: 49 Year
  Sex: Male

DRUGS (5)
  1. PREDNISONE [Concomitant]
     Indication: LYMPHOMA
     Dosage: UNK
     Dates: start: 20100201, end: 20100401
  2. CYCLOPHOSPHAMIDE [Concomitant]
     Indication: LYMPHOMA
     Dosage: UNK
     Dates: start: 20100201, end: 20100401
  3. MABTHERA [Suspect]
     Indication: LYMPHOMA
     Dosage: UNK
     Route: 065
     Dates: start: 20100201, end: 20100401
  4. DOXORUBICIN [Concomitant]
     Indication: LYMPHOMA
     Dosage: UNK
     Dates: start: 20100201, end: 20100401
  5. VINCRISTINE [Concomitant]
     Indication: LYMPHOMA
     Dosage: UNK
     Dates: start: 20100201, end: 20100401

REACTIONS (2)
  - ARTHRALGIA [None]
  - LIGAMENT RUPTURE [None]
